FAERS Safety Report 24885164 (Version 2)
Quarter: 2025Q3

REPORT INFORMATION
  Report Type: Spontaneous
  Country: US (occurrence: US)
  Receive Date: 20250124
  Receipt Date: 20250710
  Transmission Date: 20251020
  Serious: No
  Sender: MERCK SHARP & DOHME LLC
  Company Number: US-009507513-2501USA006884

PATIENT
  Sex: Female
  Weight: 81.6 kg

DRUGS (31)
  1. SOTATERCEPT [Suspect]
     Active Substance: SOTATERCEPT
     Indication: Product used for unknown indication
     Route: 065
  2. SOTATERCEPT [Suspect]
     Active Substance: SOTATERCEPT
  3. SOTATERCEPT [Suspect]
     Active Substance: SOTATERCEPT
  4. SOTATERCEPT [Suspect]
     Active Substance: SOTATERCEPT
  5. TREPROSTINIL [Suspect]
     Active Substance: TREPROSTINIL
     Indication: Pulmonary arterial hypertension
     Dosage: DOSE DESCRIPTION : 12 MG IN THE MORNING, 11 MG IN THE AFTERNOON AND 10 MG IN THE EVENING, TID
     Route: 048
     Dates: start: 20220602
  6. TREPROSTINIL [Suspect]
     Active Substance: TREPROSTINIL
     Indication: Pulmonary arterial hypertension
     Route: 048
     Dates: start: 20220602
  7. TREPROSTINIL [Suspect]
     Active Substance: TREPROSTINIL
     Indication: Pulmonary arterial hypertension
     Dosage: DOSE DESCRIPTION : 10 MILLIGRAM?DAILY DOSE : 30 MILLIGRAM
     Route: 048
     Dates: start: 20250104
  8. ORENITRAM [Suspect]
     Active Substance: TREPROSTINIL
     Indication: Pulmonary arterial hypertension
     Route: 048
  9. ORENITRAM [Suspect]
     Active Substance: TREPROSTINIL
     Indication: Pulmonary arterial hypertension
     Route: 048
  10. FUROSEMIDE [Concomitant]
     Active Substance: FUROSEMIDE
  11. OZEMPIC [Concomitant]
     Active Substance: SEMAGLUTIDE
  12. TYLENOL EXTRA STRENGTH [Concomitant]
     Active Substance: ACETAMINOPHEN
  13. VOLTAREN ARTHRITIS PAIN [Concomitant]
     Active Substance: DICLOFENAC SODIUM
  14. ALLEGRA ALLERGY [Concomitant]
     Active Substance: FEXOFENADINE HYDROCHLORIDE
  15. EXCEDRIN MIGRAINE [Concomitant]
     Active Substance: ACETAMINOPHEN\ASPIRIN\CAFFEINE
  16. MOUNJARO [Concomitant]
     Active Substance: TIRZEPATIDE
  17. HI POTENCY MULTIVITAMIN WITH MINERALS [Concomitant]
  18. PANTOPRAZOLE SODIUM [Concomitant]
     Active Substance: PANTOPRAZOLE SODIUM
  19. ATORVASTATIN CALCIUM [Concomitant]
     Active Substance: ATORVASTATIN CALCIUM
  20. DIMETHYL SULFONE [Concomitant]
     Active Substance: DIMETHYL SULFONE
  21. OPSUMIT [Concomitant]
     Active Substance: MACITENTAN
  22. VITAMIN B12 [Concomitant]
     Active Substance: CYANOCOBALAMIN
  23. D 400 [Concomitant]
  24. ONDANSETRON HYDROCHLORIDE [Concomitant]
     Active Substance: ONDANSETRON HYDROCHLORIDE
  25. PROCHLORPERAZINE EDISYLATE [Concomitant]
     Active Substance: PROCHLORPERAZINE EDISYLATE
  26. VITAMIN D2 [Concomitant]
     Active Substance: ERGOCALCIFEROL
  27. UBRELVY [Concomitant]
     Active Substance: UBROGEPANT
  28. PROGESTERONE [Concomitant]
     Active Substance: PROGESTERONE
  29. MAGNESIUM [Concomitant]
     Active Substance: MAGNESIUM
  30. DIMETHYL SULFONE [Concomitant]
     Active Substance: DIMETHYL SULFONE
  31. dim-plus [Concomitant]
     Route: 065

REACTIONS (2)
  - Full blood count increased [Unknown]
  - Migraine [Unknown]
